APPROVED DRUG PRODUCT: CLOPIDOGREL BISULFATE
Active Ingredient: CLOPIDOGREL BISULFATE
Strength: EQ 300MG BASE
Dosage Form/Route: TABLET;ORAL
Application: A076274 | Product #002 | TE Code: AB
Applicant: APOTEX INC
Approved: Mar 4, 2014 | RLD: No | RS: Yes | Type: RX